FAERS Safety Report 18965128 (Version 2)
Quarter: 2021Q3

REPORT INFORMATION
  Report Type: Spontaneous
  Country: NL (occurrence: NL)
  Receive Date: 20210303
  Receipt Date: 20210720
  Transmission Date: 20211014
  Serious: Yes (Other)
  Sender: FDA-Public Use
  Company Number: NL-MYLANLABS-2021M1012664

PATIENT
  Sex: Female
  Weight: 120 kg

DRUGS (7)
  1. TOPIRAMATE. [Suspect]
     Active Substance: TOPIRAMATE
     Indication: DISSOCIATIVE DISORDER
     Dosage: UNK
  2. CLOMIPRAMINE [Suspect]
     Active Substance: CLOMIPRAMINE
     Indication: POST-TRAUMATIC STRESS DISORDER
     Dosage: UNK
  3. CLOMIPRAMINE [Suspect]
     Active Substance: CLOMIPRAMINE
     Dosage: 300 MILLIGRAM, QD
     Dates: start: 2013
  4. TOPIRAMATE. [Suspect]
     Active Substance: TOPIRAMATE
     Indication: POST-TRAUMATIC STRESS DISORDER
     Dosage: UNK
  5. CLOMIPRAMINE [Suspect]
     Active Substance: CLOMIPRAMINE
     Indication: DEPRESSION
     Dosage: 150 MILLIGRAM, QD (1X DAY 2 TABLET)
     Dates: start: 2013
  6. TOPIRAMATE. [Suspect]
     Active Substance: TOPIRAMATE
     Indication: DISSOCIATIVE DISORDER
     Dosage: 100 MILLIGRAM, QD (1X PER DAY 1 TABLET)
     Dates: start: 2018
  7. TOPIRAMATE. [Suspect]
     Active Substance: TOPIRAMATE
     Indication: POST-TRAUMATIC STRESS DISORDER
     Dosage: 50 MILLIGRAM, QD (MEDICINE PRESCRIBED BY DOCTOR: YES)
     Dates: start: 2018

REACTIONS (9)
  - Off label use [Unknown]
  - Product use in unapproved indication [Unknown]
  - Paraesthesia [Not Recovered/Not Resolved]
  - Weight increased [Unknown]
  - Acromegaly [Unknown]
  - Headache [Unknown]
  - Liver function test increased [Unknown]
  - Suicide attempt [Unknown]
  - Face oedema [Unknown]

NARRATIVE: CASE EVENT DATE: 2018
